FAERS Safety Report 5093176-7 (Version None)
Quarter: 2006Q3

REPORT INFORMATION
  Report Type: 
  Country: None (occurrence: None)
  Receive Date: 20060728
  Receipt Date: 20060626
  Transmission Date: 20061208
  Serious: No
  Sender: FDA-Public Use
  Company Number: 254570

PATIENT

DRUGS (3)
  1. LEVEMIR FLEXPEN(INSULIN DETEMIR) SOLUTION FOR INJECTION, .0024MOL/L [Suspect]
     Indication: DIABETES MELLITUS
     Dosage: 40 LU, QD, SUBCUTANEOUS
     Route: 058
  2. ACTOS /01460201/ (PIOGLITAZONE) [Concomitant]
  3. METFORMIN HCL [Concomitant]

REACTIONS (1)
  - BLOOD GLUCOSE INCREASED [None]
